FAERS Safety Report 10572090 (Version 2)
Quarter: 2014Q4

REPORT INFORMATION
  Report Type: Spontaneous
  Country: JP (occurrence: JP)
  Receive Date: 20141107
  Receipt Date: 20141117
  Transmission Date: 20150529
  Serious: Yes (Hospitalization, Other)
  Sender: FDA-Public Use
  Company Number: JP-GLAXOSMITHKLINE-JP2014JPN016156

PATIENT
  Age: 88 Year
  Sex: Female

DRUGS (1)
  1. VALTREX [Suspect]
     Active Substance: VALACYCLOVIR HYDROCHLORIDE
     Indication: HERPES ZOSTER
     Dosage: 1000 MG, TID
     Route: 048

REACTIONS (13)
  - Encephalopathy [Unknown]
  - Unresponsive to stimuli [Recovered/Resolved]
  - Depressed level of consciousness [Recovered/Resolved]
  - Urine output decreased [Recovered/Resolved]
  - Neurosis [Unknown]
  - Overdose [Unknown]
  - Renal impairment [Unknown]
  - Somnolence [Unknown]
  - Acute kidney injury [Unknown]
  - Mental impairment [Recovered/Resolved]
  - Confusional state [Unknown]
  - Malaise [Unknown]
  - Psychomotor hyperactivity [Unknown]
